FAERS Safety Report 8909602 (Version 1)
Quarter: 2012Q4

REPORT INFORMATION
  Report Type: 
  Country: US (occurrence: US)
  Receive Date: 20121115
  Receipt Date: 20121115
  Transmission Date: 20130627
  Serious: No
  Sender: FDA-Public Use
  Company Number: US-BAYER-2012-118930

PATIENT
  Age: 62 Year
  Sex: Female
  Weight: 59 kg

DRUGS (3)
  1. ALEVE CAPLET/TABLET,MIDOL EXTENDED RELIEF CAPLET [Suspect]
     Dosage: UNK DF, OTHER
     Route: 048
     Dates: start: 2011
  2. HYDROCODONE [Concomitant]
  3. INSULIN [Concomitant]

REACTIONS (2)
  - Overdose [None]
  - Drug ineffective [None]
